FAERS Safety Report 14726752 (Version 4)
Quarter: 2018Q3

REPORT INFORMATION
  Report Type: Spontaneous
  Country: GR (occurrence: GR)
  Receive Date: 20180406
  Receipt Date: 20180721
  Transmission Date: 20181010
  Serious: Yes (Hospitalization)
  Sender: FDA-Public Use
  Company Number: GR-ACCORD-065395

PATIENT
  Age: 48 Year
  Sex: Female

DRUGS (10)
  1. RAMIPRIL. [Suspect]
     Active Substance: RAMIPRIL
     Indication: CARDIAC FAILURE CHRONIC
     Route: 065
  2. LEVOSIMENDAN [Concomitant]
     Active Substance: LEVOSIMENDAN
     Indication: CARDIOMYOPATHY
     Dosage: 0.1 MCG/KG/MIN FOR 24 H
     Route: 065
  3. EPLERENONE. [Concomitant]
     Active Substance: EPLERENONE
  4. FUROSEMIDE. [Suspect]
     Active Substance: FUROSEMIDE
     Indication: CARDIAC FAILURE CHRONIC
     Route: 065
  5. DOPAMINE [Concomitant]
     Active Substance: DOPAMINE\DOPAMINE HYDROCHLORIDE
     Dosage: 5 MCG/KG/MIN
     Route: 065
  6. DIGOXIN. [Concomitant]
     Active Substance: DIGOXIN
  7. DOXORUBICIN [Concomitant]
     Active Substance: DOXORUBICIN
     Indication: CHONDROSARCOMA
  8. IFOSFAMIDE. [Concomitant]
     Active Substance: IFOSFAMIDE
     Indication: CHONDROSARCOMA
     Route: 065
  9. CARVEDILOL/CARVEDILOL HYDROCHLODRIDE [Suspect]
     Active Substance: CARVEDILOL HYDROCHLORIDE
     Indication: CARDIAC FAILURE CHRONIC
     Route: 065
  10. CISPLATIN. [Concomitant]
     Active Substance: CISPLATIN
     Indication: CHONDROSARCOMA
     Route: 065

REACTIONS (10)
  - Hypotension [Unknown]
  - Pleural effusion [None]
  - International normalised ratio increased [None]
  - Acute hepatic failure [Recovered/Resolved]
  - Acute kidney injury [Recovered/Resolved]
  - Mental impairment [Unknown]
  - Ejection fraction decreased [None]
  - Activated partial thromboplastin time prolonged [None]
  - Cardiac murmur [None]
  - Ventricular hypokinesia [None]
